FAERS Safety Report 21775525 (Version 4)
Quarter: 2023Q1

REPORT INFORMATION
  Report Type: Report from Study
  Country: FR (occurrence: FR)
  Receive Date: 20221226
  Receipt Date: 20230209
  Transmission Date: 20230417
  Serious: Yes (Death, Other)
  Sender: FDA-Public Use
  Company Number: None

PATIENT
  Age: 15 Day
  Sex: Female
  Weight: .66 kg

DRUGS (1)
  1. ZITHROMAX [Suspect]
     Active Substance: AZITHROMYCIN DIHYDRATE
     Indication: Ureaplasma infection
     Dosage: 20 MG, 1X/DAY
     Route: 042
     Dates: start: 20221130, end: 20221202

REACTIONS (5)
  - Product packaging issue [Fatal]
  - Product preparation issue [Fatal]
  - Accidental overdose [Fatal]
  - Cardio-respiratory arrest neonatal [Fatal]
  - Pulmonary congestion [Fatal]

NARRATIVE: CASE EVENT DATE: 20221202
